FAERS Safety Report 8950793 (Version 5)
Quarter: 2013Q3

REPORT INFORMATION
  Report Type: Spontaneous
  Country: US (occurrence: US)
  Receive Date: 20121206
  Receipt Date: 20130904
  Transmission Date: 20140515
  Serious: Yes (Hospitalization, Other)
  Sender: FDA-Public Use
  Company Number: US-US-EMD SERONO, INC.-7179338

PATIENT
  Age: 26 Year
  Sex: Female

DRUGS (8)
  1. REBIF [Suspect]
     Indication: RELAPSING-REMITTING MULTIPLE SCLEROSIS
     Route: 058
     Dates: start: 201202
  2. REBIF [Suspect]
     Route: 058
     Dates: start: 20121105, end: 20121124
  3. REBIF [Suspect]
     Route: 058
     Dates: start: 20121124
  4. REBIF [Suspect]
     Route: 058
     Dates: start: 201211, end: 20121125
  5. SOLU MEDROL [Suspect]
     Indication: MULTIPLE SCLEROSIS RELAPSE
     Route: 042
     Dates: end: 201211
  6. HYDROCHLOROTHIAZIDE [Suspect]
     Indication: BRADYCARDIA
     Route: 042
     Dates: end: 201211
  7. LEXAPRO [Concomitant]
     Indication: PRODUCT USED FOR UNKNOWN INDICATION
     Route: 048
     Dates: end: 20121125
  8. IBUPROFEN [Concomitant]
     Route: 048
     Dates: end: 20121125

REACTIONS (6)
  - Bradycardia [Recovered/Resolved]
  - Hypertension [Recovering/Resolving]
  - Cephalo-pelvic disproportion [Recovered/Resolved]
  - Multiple sclerosis relapse [Recovered/Resolved]
  - Normal newborn [Recovered/Resolved]
  - Maternal exposure timing unspecified [Recovered/Resolved]
